FAERS Safety Report 6003118-5 (Version None)
Quarter: 2008Q4

REPORT INFORMATION
  Report Type: 
  Country: None (occurrence: None)
  Receive Date: 20081216
  Receipt Date: 20081205
  Transmission Date: 20090506
  Serious: Yes (Hospitalization)
  Sender: FDA-Public Use
  Company Number: CH-TEVA-182035ISR

PATIENT
  Sex: Female

DRUGS (3)
  1. SIMVASTATIN TABLETS, 20 MG [Suspect]
     Indication: LIPIDS INCREASED
     Route: 048
     Dates: start: 20080501, end: 20081111
  2. ISOTRETINOIN [Suspect]
     Indication: SKIN DISORDER
     Route: 048
     Dates: start: 20080101, end: 20081111
  3. LORAZEPAM [Concomitant]

REACTIONS (7)
  - ANXIETY [None]
  - FATIGUE [None]
  - HYPOAESTHESIA [None]
  - PALPITATIONS [None]
  - PANIC ATTACK [None]
  - RASH [None]
  - TREMOR [None]
